FAERS Safety Report 26174284 (Version 1)
Quarter: 2025Q4

REPORT INFORMATION
  Report Type: Spontaneous
  Country: US (occurrence: None)
  Receive Date: 20251217
  Receipt Date: 20251217
  Transmission Date: 20260117
  Serious: No
  Sender: FDA-CTU
  Company Number: None

PATIENT
  Age: 79 Year
  Sex: Male

DRUGS (1)
  1. PIRFENIDONE [Suspect]
     Active Substance: PIRFENIDONE
     Indication: Idiopathic pulmonary fibrosis
     Dosage: FREQUENCY : 3 TIMES A DAY;
     Route: 048
     Dates: start: 20250722, end: 20251104

REACTIONS (13)
  - Therapy cessation [None]
  - Rash vesicular [None]
  - Sunburn [None]
  - Skin exfoliation [None]
  - Stomatitis [None]
  - Gingival discomfort [None]
  - Abdominal pain upper [None]
  - Irritable bowel syndrome [None]
  - Urine odour abnormal [None]
  - Headache [None]
  - Insomnia [None]
  - Night sweats [None]
  - Quality of life decreased [None]

NARRATIVE: CASE EVENT DATE: 20251104
